FAERS Safety Report 6426084-7 (Version None)
Quarter: 2009Q4

REPORT INFORMATION
  Report Type: 
  Country: None (occurrence: None)
  Receive Date: 20091104
  Receipt Date: 20091102
  Transmission Date: 20100525
  Serious: Yes (Other)
  Sender: FDA-Public Use
  Company Number: US-ASTRAZENECA-2009UW13471

PATIENT
  Age: 43 Year
  Sex: Male
  Weight: 117.9 kg

DRUGS (4)
  1. SEROQUEL [Suspect]
     Indication: SCHIZOAFFECTIVE DISORDER
     Dosage: 400 TO 1000 MG
     Route: 048
  2. RISPERDAL [Concomitant]
  3. ZYPREXA [Concomitant]
  4. THORAZINE [Concomitant]
     Dates: start: 19900101

REACTIONS (4)
  - GALLBLADDER PERFORATION [None]
  - KETOACIDOSIS [None]
  - PANCREATITIS [None]
  - TYPE 2 DIABETES MELLITUS [None]
